FAERS Safety Report 5074354-X (Version None)
Quarter: 2006Q3

REPORT INFORMATION
  Report Type: 
  Country: None (occurrence: None)
  Receive Date: 20060803
  Receipt Date: 20060718
  Transmission Date: 20061208
  Serious: Yes (Congenital Anomaly)
  Sender: FDA-Public Use
  Company Number: FR200607003151

PATIENT
  Age: 1 Day

DRUGS (2)
  1. PROZAC [Suspect]
     Dosage: TRANSPLACENTAL
     Route: 064
  2. EUPHYTOSE (BALLOTI EXTRACT, CRATAEGUS EXTRACT, KOLA, PASSIFLORA EXTRAC [Concomitant]

REACTIONS (2)
  - DRUG EXPOSURE DURING PREGNANCY [None]
  - HYPOSPADIAS [None]
